FAERS Safety Report 10336376 (Version 1)
Quarter: 2014Q3

REPORT INFORMATION
  Report Type: Spontaneous
  Country: PL (occurrence: PL)
  Receive Date: 20140723
  Receipt Date: 20140723
  Transmission Date: 20150326
  Serious: Yes (Other)
  Sender: FDA-Public Use
  Company Number: PL-BAYER-2014-106831

PATIENT
  Sex: Female
  Weight: 90 kg

DRUGS (1)
  1. BETAFERON [Suspect]
     Active Substance: INTERFERON BETA-1B
     Indication: MULTIPLE SCLEROSIS
     Dosage: 250 ?G, QOD
     Route: 058
     Dates: start: 20120703, end: 20140703

REACTIONS (3)
  - Convulsion [None]
  - Drug ineffective [None]
  - Multiple sclerosis [None]
